FAERS Safety Report 5252309-X (Version None)
Quarter: 2007Q1

REPORT INFORMATION
  Report Type: 
  Country: None (occurrence: None)
  Receive Date: 20070301
  Receipt Date: 20060313
  Transmission Date: 20070707
  Serious: No
  Sender: FDA-Public Use
  Company Number: US-BRISTOL-MYERS SQUIBB COMPANY-13313028

PATIENT
  Age: 53 Year
  Sex: Female

DRUGS (4)
  1. TAXOL [Suspect]
     Indication: BREAST CANCER
     Route: 042
     Dates: start: 20060208, end: 20060208
  2. DEXAMETHASONE [Concomitant]
     Indication: PREMEDICATION
     Route: 042
  3. CIMETIDINE HCL [Concomitant]
     Indication: PREMEDICATION
     Route: 048
  4. DIPHENHYDRAMINE HCL [Concomitant]
     Indication: PREMEDICATION
     Route: 048

REACTIONS (1)
  - VEIN DISORDER [None]
